FAERS Safety Report 10527149 (Version 1)
Quarter: 2014Q4

REPORT INFORMATION
  Report Type: Spontaneous
  Country: US (occurrence: None)
  Receive Date: 20141016
  Receipt Date: 20141016
  Transmission Date: 20150528
  Serious: Yes (Disabling, Other)
  Sender: FDA-Public Use
  Company Number: None

PATIENT
  Age: 46 Year
  Sex: Male
  Weight: 136.08 kg

DRUGS (8)
  1. HALDOL [Suspect]
     Active Substance: HALOPERIDOL
     Indication: BIPOLAR DISORDER
     Dosage: 50 MG, 1  EVERY 8 WEEKS
     Dates: start: 201401
  2. TRAMADOL [Concomitant]
     Active Substance: TRAMADOL
  3. HYDROCHLOROTHIAZIDE. [Concomitant]
     Active Substance: HYDROCHLOROTHIAZIDE
  4. BENZATROPINE [Concomitant]
     Active Substance: BENZTROPINE
  5. XARELTO [Concomitant]
     Active Substance: RIVAROXABAN
  6. NYSTATIN. [Concomitant]
     Active Substance: NYSTATIN
  7. HALADOL [Concomitant]
  8. L-ARGINAS [Concomitant]

REACTIONS (7)
  - Unevaluable event [None]
  - Product contamination [None]
  - Thrombosis [None]
  - Arthralgia [None]
  - Muscle spasms [None]
  - Condition aggravated [None]
  - Product tampering [None]

NARRATIVE: CASE EVENT DATE: 201401
